FAERS Safety Report 11006097 (Version 1)
Quarter: 2015Q2

REPORT INFORMATION
  Report Type: Spontaneous
  Country: BR (occurrence: BR)
  Receive Date: 20150409
  Receipt Date: 20150409
  Transmission Date: 20150821
  Serious: Yes (Other)
  Sender: FDA-Public Use
  Company Number: PHHY2015BR041893

PATIENT
  Age: 78 Year
  Sex: Male
  Weight: 98 kg

DRUGS (3)
  1. EXFORGE HCT [Suspect]
     Active Substance: AMLODIPINE BESYLATE\HYDROCHLOROTHIAZIDE\VALSARTAN
     Indication: HYPERTENSION
     Dosage: 1 DF (160/12.5/5 MG), QD IN THE MORNING WITH OR WITHOUT FOOD
     Route: 048
     Dates: start: 20131113
  2. DIOVAN HCT [Suspect]
     Active Substance: HYDROCHLOROTHIAZIDE\VALSARTAN
     Indication: HYPERTENSION
     Dosage: 1 DF (80/12.5 MG), QD
     Route: 048
     Dates: start: 2006, end: 20130808
  3. DIOVAN AMLO [Suspect]
     Active Substance: AMLODIPINE\VALSARTAN
     Indication: HYPERTENSION
     Dosage: 1 DF (160/5 MG), QD
     Route: 048
     Dates: start: 201308, end: 20131112

REACTIONS (4)
  - Allergic cough [Unknown]
  - Saliva altered [Not Recovered/Not Resolved]
  - Concomitant disease aggravated [Recovering/Resolving]
  - Cough [Not Recovered/Not Resolved]

NARRATIVE: CASE EVENT DATE: 201312
